FAERS Safety Report 16058787 (Version 1)
Quarter: 2019Q1

REPORT INFORMATION
  Report Type: Report from Study
  Country: ES (occurrence: ES)
  Receive Date: 20190311
  Receipt Date: 20190311
  Transmission Date: 20190418
  Serious: Yes (Hospitalization, Other)
  Sender: FDA-Public Use
  Company Number: ES-JNJFOC-20190301583

PATIENT
  Sex: Male

DRUGS (2)
  1. ABIRATERONE ACETATE. [Suspect]
     Active Substance: ABIRATERONE ACETATE
     Indication: PROSTATE CANCER METASTATIC
     Route: 048
     Dates: start: 20120101, end: 20171231
  2. PREDNISONE. [Concomitant]
     Active Substance: PREDNISONE
     Route: 065
     Dates: start: 20120101, end: 20171231

REACTIONS (11)
  - Hypokalaemia [Unknown]
  - Atrial flutter [Unknown]
  - Diarrhoea [Unknown]
  - Nausea [Unknown]
  - Abdominal pain upper [Unknown]
  - Fatigue [Unknown]
  - Vomiting [Unknown]
  - Fluid retention [Unknown]
  - Acute coronary syndrome [Unknown]
  - Hypertension [Unknown]
  - Aspartate aminotransferase increased [Unknown]
